FAERS Safety Report 6812977-5 (Version None)
Quarter: 2010Q3

REPORT INFORMATION
  Report Type: 
  Country: None (occurrence: None)
  Receive Date: 20100701
  Receipt Date: 20100625
  Transmission Date: 20110219
  Serious: Yes (Hospitalization)
  Sender: FDA-Public Use
  Company Number: ES-BRISTOL-MYERS SQUIBB COMPANY-15168743

PATIENT
  Age: 68 Year
  Sex: Female

DRUGS (4)
  1. TAXOL [Suspect]
     Indication: BREAST CANCER
     Dosage: DURATION:5
     Route: 042
     Dates: start: 20050923
  2. LEVOTHYROXINE SODIUM [Concomitant]
  3. NEORECORMON [Concomitant]
  4. NOCTAMID [Concomitant]

REACTIONS (1)
  - PNEUMONIA PRIMARY ATYPICAL [None]
